FAERS Safety Report 7954425-8 (Version None)
Quarter: 2011Q4

REPORT INFORMATION
  Report Type: 
  Country: None (occurrence: None)
  Receive Date: 20111202
  Receipt Date: 20111121
  Transmission Date: 20120403
  Serious: Yes (Death, Life-Threatening, Hospitalization, Disabling, Congenital Anomaly)
  Sender: FDA-Public Use
  Company Number: DK-GLAXOSMITHKLINE-B0116203B

PATIENT
  Sex: Female
  Weight: 2.6 kg

DRUGS (2)
  1. FRISIUM [Suspect]
     Indication: PRODUCT USED FOR UNKNOWN INDICATION
     Route: 064
  2. LAMICTAL [Suspect]
     Indication: EPILEPSY
     Route: 064

REACTIONS (5)
  - INFECTION [None]
  - MATERNAL DRUGS AFFECTING FOETUS [None]
  - LARYNGOMALACIA [None]
  - FOETAL EXPOSURE DURING PREGNANCY [None]
  - IMMATURE RESPIRATORY SYSTEM [None]
